FAERS Safety Report 9865382 (Version 1)
Quarter: 2014Q1

REPORT INFORMATION
  Report Type: Spontaneous
  Country: US (occurrence: US)
  Receive Date: 20140203
  Receipt Date: 20140203
  Transmission Date: 20141002
  Serious: No
  Sender: FDA-Public Use
  Company Number: US-ALLERGAN-1307694US

PATIENT
  Sex: Female

DRUGS (3)
  1. RESTASIS [Suspect]
     Indication: EYE DISORDER
     Dosage: UNK
  2. JUVEDERM [Suspect]
     Indication: PRODUCT USED FOR UNKNOWN INDICATION
     Dosage: UNK
     Dates: start: 20130516, end: 20130516
  3. BLOOD PRESSURE MEDICATION NOS [Concomitant]
     Indication: HYPERTENSION

REACTIONS (3)
  - Eye swelling [Unknown]
  - Periorbital oedema [Unknown]
  - Eye swelling [Unknown]
